FAERS Safety Report 20191738 (Version 1)
Quarter: 2021Q4

REPORT INFORMATION
  Report Type: Spontaneous
  Country: US (occurrence: None)
  Receive Date: 20211216
  Receipt Date: 20211216
  Transmission Date: 20220303
  Serious: No
  Sender: FDA-Public Use
  Company Number: 2021A815828

PATIENT
  Age: 25504 Day
  Sex: Male
  Weight: 78 kg

DRUGS (1)
  1. BUDESONIDE\FORMOTEROL\GLYCOPYRRONIUM [Suspect]
     Active Substance: BUDESONIDE\FORMOTEROL\GLYCOPYRRONIUM
     Indication: Emphysema
     Dosage: 160MCG/9MCG/4.8MCG (120 ACTUATIONS) VIA INHALATION, 2 PUFFS TWICE DAILY
     Route: 055
     Dates: start: 20211109

REACTIONS (2)
  - Dyspnoea [Recovering/Resolving]
  - Drug delivery system malfunction [Unknown]

NARRATIVE: CASE EVENT DATE: 20211115
